FAERS Safety Report 20534499 (Version 2)
Quarter: 2022Q3

REPORT INFORMATION
  Report Type: Spontaneous
  Country: US (occurrence: US)
  Receive Date: 20220302
  Receipt Date: 20220812
  Transmission Date: 20221027
  Serious: No
  Sender: FDA-Public Use
  Company Number: US-SA-SAC20220224000118

PATIENT
  Sex: Male
  Weight: 48.5 kg

DRUGS (3)
  1. DUPIXENT [Suspect]
     Active Substance: DUPILUMAB
     Indication: Dermatitis atopic
     Dosage: 300 MG, QOW
     Route: 058
     Dates: start: 202011
  2. DUPIXENT [Suspect]
     Active Substance: DUPILUMAB
     Indication: Urticaria
  3. ESCITALOPRAM OXALATE [Concomitant]
     Active Substance: ESCITALOPRAM OXALATE

REACTIONS (7)
  - Injection site pain [Unknown]
  - Injection site mass [Unknown]
  - Injection site bruising [Unknown]
  - Sinusitis [Unknown]
  - Injection site swelling [Unknown]
  - Injection site rash [Recovered/Resolved]
  - Product use in unapproved indication [Unknown]
